FAERS Safety Report 23609668 (Version 1)
Quarter: 2024Q1

REPORT INFORMATION
  Report Type: Spontaneous
  Country: US (occurrence: US)
  Receive Date: 20240308
  Receipt Date: 20240308
  Transmission Date: 20240410
  Serious: No
  Sender: FDA-Public Use
  Company Number: US-NEURELIS, INC.-2023NEU000096

PATIENT

DRUGS (2)
  1. VALTOCO [Suspect]
     Active Substance: DIAZEPAM
     Indication: Seizure
     Dosage: 20 MILLIGRAM
     Route: 045
     Dates: start: 202211
  2. PHENOBARBITAL [Concomitant]
     Active Substance: PHENOBARBITAL
     Indication: Product used for unknown indication
     Dosage: 25MG/5ML TID

REACTIONS (2)
  - Therapeutic product effect delayed [Unknown]
  - Somnolence [Unknown]
